FAERS Safety Report 10234419 (Version 2)
Quarter: 2014Q2

REPORT INFORMATION
  Report Type: Spontaneous
  Country: IT (occurrence: IT)
  Receive Date: 20140612
  Receipt Date: 20140625
  Transmission Date: 20141212
  Serious: Yes (Hospitalization)
  Sender: FDA-Public Use
  Company Number: IT-BRISTOL-MYERS SQUIBB COMPANY-20952685

PATIENT
  Age: 70 Year
  Sex: Male

DRUGS (11)
  1. METFORMIN HCL [Suspect]
     Indication: DIABETES MELLITUS
     Route: 048
     Dates: start: 20120906, end: 20130903
  2. LANTUS [Suspect]
     Indication: DIABETES MELLITUS
     Route: 058
     Dates: start: 20120906, end: 20130903
  3. APIDRA [Suspect]
     Indication: DIABETES MELLITUS
     Route: 058
     Dates: start: 20120906, end: 20130903
  4. SOTALEX [Concomitant]
     Indication: HYPERTENSION
     Route: 048
  5. ENAPREN [Concomitant]
     Indication: HYPERTENSION
     Route: 048
  6. ASCRIPTIN [Concomitant]
     Route: 048
  7. LASIX [Concomitant]
     Route: 048
  8. ZYLORIC [Concomitant]
     Route: 048
  9. CRESTOR [Concomitant]
     Route: 048
  10. ENANTONE [Concomitant]
     Route: 058
  11. CASODEX [Concomitant]
     Route: 048

REACTIONS (4)
  - Tremor [Recovered/Resolved]
  - Vertigo [Recovered/Resolved]
  - Hypoglycaemia [Recovered/Resolved]
  - Malaise [Recovered/Resolved]
